FAERS Safety Report 9098780 (Version 2)
Quarter: 2013Q1

REPORT INFORMATION
  Report Type: Report from Study
  Country: US (occurrence: US)
  Receive Date: 20130213
  Receipt Date: 20130218
  Transmission Date: 20140127
  Serious: Yes (Hospitalization)
  Sender: FDA-Public Use
  Company Number: US-ASTRAZENECA-2013SE08391

PATIENT
  Age: 61 Year
  Sex: Male

DRUGS (4)
  1. OMEPRAZOLE [Suspect]
     Route: 048
  2. CRESTOR [Suspect]
     Route: 048
  3. NEXIUM [Suspect]
     Route: 048
  4. DIET PILLS [Suspect]
     Route: 065

REACTIONS (6)
  - Diabetes mellitus inadequate control [Unknown]
  - Malaise [Unknown]
  - Chest discomfort [Unknown]
  - Hyperchlorhydria [Unknown]
  - Constipation [Unknown]
  - Drug ineffective [Unknown]
